FAERS Safety Report 6853767-7 (Version None)
Quarter: 2010Q3

REPORT INFORMATION
  Report Type: 
  Country: None (occurrence: None)
  Receive Date: 20100717
  Receipt Date: 20071218
  Transmission Date: 20110219
  Serious: No
  Sender: FDA-Public Use
  Company Number: US-PFIZER INC-2007107335

PATIENT
  Sex: Female
  Weight: 65.909 kg

DRUGS (8)
  1. CHANTIX [Suspect]
     Indication: SMOKING CESSATION THERAPY
     Route: 048
     Dates: start: 20071101, end: 20071218
  2. EPZICOM [Concomitant]
     Route: 048
  3. METHADONE HCL [Concomitant]
     Route: 048
  4. KALETRA [Concomitant]
     Route: 048
  5. SYNTHROID [Concomitant]
     Route: 048
  6. ZYPREXA [Concomitant]
     Route: 048
  7. LAMICTAL [Concomitant]
     Route: 048
  8. KLONOPIN [Concomitant]
     Route: 048

REACTIONS (2)
  - NAUSEA [None]
  - VOMITING [None]
